FAERS Safety Report 6343435-2 (Version None)
Quarter: 2009Q3

REPORT INFORMATION
  Report Type: 
  Country: None (occurrence: None)
  Receive Date: 20090908
  Receipt Date: 20090903
  Transmission Date: 20100115
  Serious: Yes (Death, Hospitalization, Other)
  Sender: FDA-Public Use
  Company Number: PHHY2009TW06842

PATIENT
  Age: 60 Year

DRUGS (2)
  1. TEGRETOL [Suspect]
     Indication: FACIAL SPASM
     Dosage: 0.5 DF, BID
     Route: 048
  2. EUCLIDAN [Concomitant]

REACTIONS (4)
  - DEATH [None]
  - HYPERSENSITIVITY [None]
  - RASH [None]
  - STEVENS-JOHNSON SYNDROME [None]
